FAERS Safety Report 7930972-X (Version None)
Quarter: 2011Q4

REPORT INFORMATION
  Report Type: 
  Country: None (occurrence: None)
  Receive Date: 20111118
  Receipt Date: 20111118
  Transmission Date: 20120403
  Serious: Yes (Hospitalization)
  Sender: FDA-Public Use
  Company Number: None

PATIENT
  Sex: Female
  Weight: 50.9 kg

DRUGS (2)
  1. TAXOL [Suspect]
     Dosage: 260 MG
     Dates: end: 20111108
  2. CARBOPLATIN [Suspect]
     Dosage: 450 MG
     Dates: end: 20111108

REACTIONS (7)
  - ENTEROCOCCUS TEST POSITIVE [None]
  - PSEUDOMONAS TEST POSITIVE [None]
  - URINARY TRACT INFECTION [None]
  - PELVIC FLUID COLLECTION [None]
  - ABDOMINAL PAIN [None]
  - NAUSEA [None]
  - VOMITING [None]
